FAERS Safety Report 10359649 (Version 3)
Quarter: 2014Q4

REPORT INFORMATION
  Report Type: Spontaneous
  Country: JP (occurrence: JP)
  Receive Date: 20140804
  Receipt Date: 20141001
  Transmission Date: 20150528
  Serious: Yes (Hospitalization)
  Sender: FDA-Public Use
  Company Number: JP-JNJFOC-20140705237

PATIENT
  Age: 83 Year
  Sex: Male
  Weight: 64 kg

DRUGS (16)
  1. FLORID ORAL GEL 2% [Suspect]
     Active Substance: MICONAZOLE
     Route: 048
  2. CIBENOL [Concomitant]
     Active Substance: CIFENLINE
     Indication: ATRIAL FIBRILLATION
     Route: 048
     Dates: start: 20120907
  3. AMLODIPINE [Concomitant]
     Active Substance: AMLODIPINE BESYLATE
     Indication: HYPERTENSION
     Route: 048
     Dates: start: 20110619
  4. FLORID ORAL GEL 2% [Suspect]
     Active Substance: MICONAZOLE
     Indication: OESOPHAGEAL CANDIDIASIS
     Route: 048
     Dates: start: 20140605, end: 20140611
  5. WARFARIN [Interacting]
     Active Substance: WARFARIN
     Indication: ATRIAL FIBRILLATION
     Route: 048
     Dates: end: 20140601
  6. AVOLVE [Concomitant]
     Active Substance: DUTASTERIDE
     Indication: BENIGN PROSTATIC HYPERPLASIA
     Route: 048
     Dates: start: 20121228
  7. DEQUALINIUM CHLORIDE [Concomitant]
     Active Substance: DEQUALINIUM CHLORIDE
     Indication: PHARYNGITIS
     Route: 048
     Dates: start: 20131003
  8. LYRICA [Concomitant]
     Active Substance: PREGABALIN
     Indication: NEURALGIA
     Route: 048
     Dates: start: 20120928
  9. LOXONIN [Concomitant]
     Active Substance: LOXOPROFEN SODIUM
     Indication: OSTEOARTHRITIS
     Route: 048
     Dates: start: 20110616
  10. MUCOSTA [Concomitant]
     Active Substance: REBAMIPIDE
     Indication: GASTRIC ULCER
     Route: 048
     Dates: start: 20110616
  11. BUFFERIN [Concomitant]
     Active Substance: ASPIRIN
     Indication: ANGINA PECTORIS
     Route: 048
     Dates: start: 20121026
  12. NASONEX [Concomitant]
     Active Substance: MOMETASONE FUROATE
     Indication: RHINITIS ALLERGIC
     Route: 045
     Dates: start: 20121228
  13. WARFARIN [Interacting]
     Active Substance: WARFARIN
     Indication: ATRIAL FIBRILLATION
     Route: 048
     Dates: start: 20140610
  14. TALION [Concomitant]
     Active Substance: BEPOTASTINE
     Indication: RHINITIS ALLERGIC
     Route: 048
     Dates: start: 20110619
  15. NICOTINAMIDE [Concomitant]
     Active Substance: NIACINAMIDE
     Indication: TINNITUS
     Route: 048
     Dates: start: 20121018
  16. TAMSULOSIN HYDROCHLORIDE. [Concomitant]
     Active Substance: TAMSULOSIN HYDROCHLORIDE
     Indication: BENIGN PROSTATIC HYPERPLASIA
     Route: 048
     Dates: start: 20121228

REACTIONS (4)
  - Haemorrhage subcutaneous [Recovering/Resolving]
  - Drug interaction [Recovering/Resolving]
  - Haemarthrosis [Recovering/Resolving]
  - International normalised ratio increased [Recovered/Resolved]

NARRATIVE: CASE EVENT DATE: 20140704
